FAERS Safety Report 6029454-4 (Version None)
Quarter: 2008Q4

REPORT INFORMATION
  Report Type: 
  Country: None (occurrence: None)
  Receive Date: 20081222
  Receipt Date: 20081111
  Transmission Date: 20090506
  Serious: No
  Sender: FDA-Public Use
  Company Number: ALL1-2008-03299

PATIENT
  Age: 13 Year
  Sex: Male
  Weight: 48.5 kg

DRUGS (9)
  1. VYVANSE [Suspect]
     Indication: ATTENTION DEFICIT/HYPERACTIVITY DISORDER
     Dosage: 30 MG, 1X/DAY:QD, ORAL ; 30 MG, 1X/DAY:QD, ORAL; 30 MG, 1X/DAY:QD, ORAL
     Route: 048
     Dates: start: 20080701, end: 20080801
  2. VYVANSE [Suspect]
     Indication: ATTENTION DEFICIT/HYPERACTIVITY DISORDER
     Dosage: 30 MG, 1X/DAY:QD, ORAL ; 30 MG, 1X/DAY:QD, ORAL; 30 MG, 1X/DAY:QD, ORAL
     Route: 048
     Dates: start: 20080910, end: 20081007
  3. VYVANSE [Suspect]
     Indication: ATTENTION DEFICIT/HYPERACTIVITY DISORDER
     Dosage: 30 MG, 1X/DAY:QD, ORAL ; 30 MG, 1X/DAY:QD, ORAL; 30 MG, 1X/DAY:QD, ORAL
     Route: 048
     Dates: start: 20081022, end: 20081106
  4. PULMICORT [Concomitant]
  5. NASONEX [Concomitant]
  6. SINGULAIR /01362601/ (MONTELUKAST) [Concomitant]
  7. LORTADINE (LORATADINE) [Concomitant]
  8. RESCUE INHALER [Concomitant]
  9. DESMOPRESSIN ACETATE [Concomitant]

REACTIONS (8)
  - ANGER [None]
  - BRADYPHRENIA [None]
  - CONDITION AGGRAVATED [None]
  - DYSPHEMIA [None]
  - INFLUENZA LIKE ILLNESS [None]
  - MEMORY IMPAIRMENT [None]
  - NAUSEA [None]
  - OFF LABEL USE [None]
